FAERS Safety Report 10134881 (Version 2)
Quarter: 2014Q2

REPORT INFORMATION
  Report Type: Spontaneous
  Country: CA (occurrence: CA)
  Receive Date: 20140428
  Receipt Date: 20140506
  Transmission Date: 20141212
  Serious: Yes (Other)
  Sender: FDA-Public Use
  Company Number: CA-PFIZER INC-2014111294

PATIENT
  Age: 5 Year
  Sex: Male
  Weight: 28 kg

DRUGS (5)
  1. BENEFIX [Suspect]
     Indication: FACTOR IX DEFICIENCY
     Dosage: 1030 IU,
     Route: 042
     Dates: start: 20130429
  2. BENEFIX [Suspect]
     Dosage: 997 IU, UNK (PROPHYLAXIS DOSE)
     Route: 042
     Dates: start: 20140417, end: 20140417
  3. BENEFIX [Suspect]
     Dosage: 1030 IU, UNK
     Route: 042
     Dates: start: 20140418, end: 20140418
  4. BENEFIX [Suspect]
     Dosage: 997 IU, UNK
     Route: 042
     Dates: start: 20140421
  5. BENEFIX [Suspect]
     Dosage: 1000 IU, 2X/WEEK

REACTIONS (5)
  - Muscle haemorrhage [Unknown]
  - Pain in extremity [Unknown]
  - Weight bearing difficulty [Unknown]
  - Joint range of motion decreased [Unknown]
  - Drug ineffective [Unknown]
